FAERS Safety Report 20518154 (Version 3)
Quarter: 2022Q3

REPORT INFORMATION
  Report Type: Report from Study
  Country: CA (occurrence: CA)
  Receive Date: 20220225
  Receipt Date: 20220830
  Transmission Date: 20221027
  Serious: Yes (Other)
  Sender: FDA-Public Use
  Company Number: CA-BAUSCH-BL-2020-022581

PATIENT
  Age: 56 Year
  Sex: Female
  Weight: 74.83 kg

DRUGS (11)
  1. CONTRAVE [Suspect]
     Active Substance: BUPROPION HYDROCHLORIDE\NALTREXONE HYDROCHLORIDE
     Indication: Weight control
     Dosage: STRENGTH: 90 MG/8 MG
     Route: 048
     Dates: start: 20190902, end: 201909
  2. CONTRAVE [Suspect]
     Active Substance: BUPROPION HYDROCHLORIDE\NALTREXONE HYDROCHLORIDE
     Indication: Appetite disorder
     Dosage: STRENGTH: 90 MG/8 MG (2 DOSAGE FORMS, 1 IN 12 HR)
     Route: 048
     Dates: start: 20190923, end: 202007
  3. CONTRAVE [Suspect]
     Active Substance: BUPROPION HYDROCHLORIDE\NALTREXONE HYDROCHLORIDE
     Dosage: STRENGTH: 90 MG/8 MG; START DATE: 29/JUL/2020 (APPROX) (1 DOSAGE FORMS, 1 IN 12 HR)
     Route: 048
     Dates: start: 202007, end: 2020
  4. CONTRAVE [Suspect]
     Active Substance: BUPROPION HYDROCHLORIDE\NALTREXONE HYDROCHLORIDE
     Dosage: STRENGTH: 90 MG/8 MG (2 DOSAGE FORMS, 1 IN 12 HR)
     Route: 048
     Dates: start: 20200828, end: 20220124
  5. CONTRAVE [Suspect]
     Active Substance: BUPROPION HYDROCHLORIDE\NALTREXONE HYDROCHLORIDE
     Dosage: STRENGTH: 90 MG/8 MG, 2 TABS PM
     Route: 048
     Dates: start: 20220201, end: 202202
  6. CONTRAVE [Suspect]
     Active Substance: BUPROPION HYDROCHLORIDE\NALTREXONE HYDROCHLORIDE
     Dosage: STRENGTH: 90 MG/8 MG, 2 TABS BID
     Route: 048
     Dates: start: 20220215, end: 2022
  7. CONTRAVE [Suspect]
     Active Substance: BUPROPION HYDROCHLORIDE\NALTREXONE HYDROCHLORIDE
     Dosage: STRENGTH: 90 MG/8 MG, 2 TABS AM
     Route: 048
     Dates: start: 20220708, end: 20220714
  8. CONTRAVE [Suspect]
     Active Substance: BUPROPION HYDROCHLORIDE\NALTREXONE HYDROCHLORIDE
     Dosage: STRENGTH: 90 MG/8 MG, 2 TABS BID
     Route: 048
     Dates: start: 20220715
  9. SYNTHROID [Concomitant]
     Active Substance: LEVOTHYROXINE SODIUM
     Indication: Hypothyroidism
     Dosage: DAILY (1.25 MCG, 1 IN 1 D)
     Route: 048
  10. TANNIC ACID [Concomitant]
     Active Substance: TANNIC ACID
     Indication: Hair disorder
     Dosage: DAILY (1 IN 1 D)
     Route: 048
     Dates: start: 202201
  11. TANNIC ACID [Concomitant]
     Active Substance: TANNIC ACID
     Indication: Nail disorder

REACTIONS (20)
  - Blood pressure increased [Recovered/Resolved]
  - Muscle rupture [Recovering/Resolving]
  - Inflammatory pain [Recovered/Resolved]
  - COVID-19 [Unknown]
  - Contusion [Recovering/Resolving]
  - Cystitis [Recovered/Resolved]
  - Gastrooesophageal reflux disease [Not Recovered/Not Resolved]
  - Pain in extremity [Recovering/Resolving]
  - Fall [Recovering/Resolving]
  - Crying [Not Recovered/Not Resolved]
  - Pain [Recovering/Resolving]
  - Taste disorder [Not Recovered/Not Resolved]
  - Nausea [Recovered/Resolved]
  - Dizziness [Recovered/Resolved]
  - Balance disorder [Recovered/Resolved]
  - Feeling hot [Recovered/Resolved]
  - Nervousness [Recovered/Resolved]
  - Depressed mood [Not Recovered/Not Resolved]
  - Product dose omission in error [Unknown]
  - Drug titration error [Unknown]

NARRATIVE: CASE EVENT DATE: 20200701
